FAERS Safety Report 9255444 (Version 1)
Quarter: 2013Q2

REPORT INFORMATION
  Report Type: Spontaneous
  Country: US (occurrence: None)
  Receive Date: 20130423
  Receipt Date: 20130423
  Transmission Date: 20140414
  Serious: Yes (Other)
  Sender: FDA-Public Use
  Company Number: None

PATIENT
  Age: 31 Year
  Sex: Female
  Weight: 68.04 kg

DRUGS (1)
  1. MIRENA [Suspect]
     Indication: CONTRACEPTION
     Dates: start: 20110206, end: 20120810

REACTIONS (12)
  - Irritability [None]
  - Communication disorder [None]
  - Palpitations [None]
  - Feeling abnormal [None]
  - Memory impairment [None]
  - Anxiety [None]
  - Hypoaesthesia [None]
  - Crying [None]
  - Tremor [None]
  - Anxiety [None]
  - Emotional disorder [None]
  - Metrorrhagia [None]
